FAERS Safety Report 5593351-9 (Version None)
Quarter: 2008Q1

REPORT INFORMATION
  Report Type: 
  Country: None (occurrence: None)
  Receive Date: 20080114
  Receipt Date: 20080102
  Transmission Date: 20080703
  Serious: Yes (Hospitalization, Other)
  Sender: FDA-Public Use
  Company Number: 231018J07USA

PATIENT
  Age: 57 Year
  Sex: Female

DRUGS (7)
  1. REBIF [Suspect]
     Indication: MULTIPLE SCLEROSIS
     Dosage: 44 MCG, 3 IN 1 WEEKS, SUBCUTANEOUS
     Route: 058
     Dates: start: 20060615
  2. ACCUPRIL [Concomitant]
  3. DYNACIRC CR [Concomitant]
  4. CYMBALTA [Concomitant]
  5. TRAMADOL (TRAMADOL /00599201/) [Concomitant]
  6. PREVACID [Concomitant]
  7. LYRICA [Concomitant]

REACTIONS (5)
  - FOOT DEFORMITY [None]
  - LOCALISED INFECTION [None]
  - NO THERAPEUTIC RESPONSE [None]
  - OSTEOMYELITIS [None]
  - ULCER [None]
